FAERS Safety Report 9647609 (Version 1)
Quarter: 2013Q4

REPORT INFORMATION
  Report Type: Report from Study
  Country: CO (occurrence: CO)
  Receive Date: 20131028
  Receipt Date: 20131028
  Transmission Date: 20140711
  Serious: Yes (Death, Hospitalization)
  Sender: FDA-Public Use
  Company Number: CO-ROCHE-1293881

PATIENT
  Age: 93 Year
  Sex: Female

DRUGS (3)
  1. LUCENTIS [Suspect]
     Indication: MACULAR DEGENERATION
     Route: 050
     Dates: start: 20130628
  2. LOSARTAN [Concomitant]
  3. METFORMIN [Concomitant]
     Route: 065

REACTIONS (3)
  - Local swelling [Fatal]
  - Blood glucose increased [Fatal]
  - Urinary tract infection [Fatal]
